FAERS Safety Report 9227990 (Version 1)
Quarter: 2013Q2

REPORT INFORMATION
  Report Type: Spontaneous
  Country: US (occurrence: US)
  Receive Date: 20130412
  Receipt Date: 20130412
  Transmission Date: 20140414
  Serious: No
  Sender: FDA-Public Use
  Company Number: US-GLAXOSMITHKLINE-A1007420A

PATIENT
  Age: 5 Month
  Sex: Male

DRUGS (2)
  1. VUSION [Suspect]
     Indication: DERMATITIS DIAPER
     Route: 061
     Dates: start: 20121220, end: 20121225
  2. TYLENOL [Concomitant]

REACTIONS (2)
  - Rash vesicular [Recovered/Resolved]
  - Drug ineffective [Unknown]
